FAERS Safety Report 12349528 (Version 1)
Quarter: 2016Q2

REPORT INFORMATION
  Report Type: Spontaneous
  Country: US (occurrence: US)
  Receive Date: 20160510
  Receipt Date: 20160510
  Transmission Date: 20160815
  Serious: Yes (Life-Threatening, Other)
  Sender: FDA-Public Use
  Company Number: US-ASTRAZENECA-2016SE48540

PATIENT
  Age: 45 Year
  Sex: Female
  Weight: 87.1 kg

DRUGS (20)
  1. LISINOPRIL. [Suspect]
     Active Substance: LISINOPRIL
     Dosage: ZESTRIL
     Route: 048
  2. COLACE [Concomitant]
     Active Substance: DOCUSATE SODIUM
  3. EMLA [Concomitant]
     Active Substance: LIDOCAINE\PRILOCAINE
     Dates: start: 20160202
  4. ROXICODONE [Concomitant]
     Active Substance: OXYCODONE HYDROCHLORIDE
     Dosage: 3 TIMES PER WEEK
     Route: 048
     Dates: start: 20120723
  5. NEXIUM [Suspect]
     Active Substance: ESOMEPRAZOLE MAGNESIUM
     Route: 048
  6. TOPROL XL [Suspect]
     Active Substance: METOPROLOL SUCCINATE
     Route: 048
  7. XANAX [Concomitant]
     Active Substance: ALPRAZOLAM
  8. ZOLEDRONIC ACID [Concomitant]
     Active Substance: ZOLEDRONIC ACID
     Dosage: EVERY THREE MONTH
  9. PRILOSEC [Suspect]
     Active Substance: OMEPRAZOLE MAGNESIUM
     Route: 048
  10. TAMOXIFEN [Concomitant]
     Active Substance: TAMOXIFEN
  11. AROMASIN [Concomitant]
     Active Substance: EXEMESTANE
     Route: 048
     Dates: start: 201506
  12. LEVOXYL [Concomitant]
     Active Substance: LEVOTHYROXINE SODIUM
  13. LISINOPRIL. [Suspect]
     Active Substance: LISINOPRIL
     Dosage: PRINIVIL
     Route: 048
  14. WELLBUTRIN [Concomitant]
     Active Substance: BUPROPION HYDROCHLORIDE
  15. CYMBALTA [Concomitant]
     Active Substance: DULOXETINE HYDROCHLORIDE
  16. IBRANCE [Concomitant]
     Active Substance: PALBOCICLIB
     Dosage: 125 MG DAILY, 3 WEEKS ON AND 1 WEEK OFF
     Route: 048
  17. NEURONTIN [Concomitant]
     Active Substance: GABAPENTIN
  18. ROXICODONE [Concomitant]
     Active Substance: OXYCODONE HYDROCHLORIDE
     Route: 048
     Dates: start: 20160202
  19. MAXZIDE-25 [Concomitant]
     Active Substance: HYDROCHLOROTHIAZIDE\TRIAMTERENE
     Route: 048
  20. ZOLEDRONIC ACID [Concomitant]
     Active Substance: ZOLEDRONIC ACID
     Dosage: MONTHLY

REACTIONS (14)
  - Fluid retention [Unknown]
  - Breast cancer [Unknown]
  - Metastases to spine [Unknown]
  - Panic attack [Unknown]
  - Autonomic nervous system imbalance [Unknown]
  - Anxiety [Unknown]
  - Arthritis [Unknown]
  - Peripheral swelling [Unknown]
  - Depression [Unknown]
  - Breast cancer [Not Recovered/Not Resolved]
  - Pulmonary embolism [Unknown]
  - Metastases to bone [Unknown]
  - Pulmonary mass [Unknown]
  - Fatigue [Unknown]

NARRATIVE: CASE EVENT DATE: 2009
